FAERS Safety Report 10153836 (Version 5)
Quarter: 2020Q2

REPORT INFORMATION
  Report Type: Spontaneous
  Country: US (occurrence: US)
  Receive Date: 20140506
  Receipt Date: 20200522
  Transmission Date: 20200713
  Serious: Yes (Other)
  Sender: FDA-Public Use
  Company Number: US-PFIZER INC-2014120950

PATIENT
  Age: 26 Year
  Sex: Female
  Weight: 86.18 kg

DRUGS (7)
  1. PHOSPHOLINE IODIDE [Suspect]
     Active Substance: ECHOTHIOPHATE IODIDE
     Dosage: UNK
     Dates: start: 1994
  2. SYNTHROID [Concomitant]
     Active Substance: LEVOTHYROXINE SODIUM
     Indication: HYPOTHYROIDISM
     Dosage: 125 UG, DAILY
  3. BRIMONIDINE [Concomitant]
     Active Substance: BRIMONIDINE TARTRATE
     Indication: GLAUCOMA
     Dosage: UNK
  4. PHOSPHOLINE IODIDE [Suspect]
     Active Substance: ECHOTHIOPHATE IODIDE
     Indication: GLAUCOMA
     Dosage: 2 GTT, 2X/DAY (ONE DROP IN EACH EYE TWO TIMES A DAY)
     Dates: start: 1993
  5. PHOSPHOLINE IODIDE [Suspect]
     Active Substance: ECHOTHIOPHATE IODIDE
     Dosage: 2 GTT, DAILY (ONE DROP IN EACH EYE DAILY)
     Dates: start: 20140428
  6. LATANOPROST. [Concomitant]
     Active Substance: LATANOPROST
     Indication: GLAUCOMA
     Dosage: UNK
  7. DORZOLAMIDE TIMOLOL [Concomitant]
     Active Substance: DORZOLAMIDE
     Indication: GLAUCOMA
     Dosage: UNK

REACTIONS (8)
  - Eye pain [Unknown]
  - Withdrawal syndrome [Unknown]
  - Ocular discomfort [Unknown]
  - Blindness unilateral [Unknown]
  - Vitreous floaters [Unknown]
  - Vision blurred [Unknown]
  - Photopsia [Unknown]
  - Visual impairment [Unknown]
